FAERS Safety Report 7757259-2 (Version None)
Quarter: 2011Q3

REPORT INFORMATION
  Report Type: 
  Country: None (occurrence: None)
  Receive Date: 20110916
  Receipt Date: 20110907
  Transmission Date: 20111222
  Serious: Yes (Other)
  Sender: FDA-Public Use
  Company Number: DE-UCBSA-041057

PATIENT
  Sex: Female
  Weight: 77 kg

DRUGS (11)
  1. TRAMABETA LONG [Concomitant]
     Indication: RHEUMATOID ARTHRITIS
     Dosage: 100MG
     Dates: start: 20090916
  2. PREDNISOLONE [Concomitant]
     Indication: LOCAL SWELLING
     Dates: start: 20080514
  3. PREDNISOLONE [Concomitant]
     Indication: RHEUMATOID ARTHRITIS
     Dates: start: 20080514
  4. OMEPRAZOLE [Concomitant]
     Indication: ABDOMINAL PAIN UPPER
     Dates: start: 20080903
  5. HUMIRA [Concomitant]
     Indication: RHEUMATOID ARTHRITIS
     Dates: start: 20090929, end: 20100201
  6. METAMIZOL [Concomitant]
     Indication: RHEUMATOID ARTHRITIS
     Dosage: 500 MG
     Dates: start: 20081126
  7. FOLIC ACID [Concomitant]
     Indication: RHEUMATOID ARTHRITIS
     Dates: start: 20081015
  8. CERTOLIZUMAB PEGOL [Suspect]
     Dosage: 200 MG, NO. OF DOSES RECEIVED 4
     Route: 058
     Dates: start: 20100902, end: 20100101
  9. CERTOLIZUMAB PEGOL [Suspect]
     Indication: RHEUMATOID ARTHRITIS
     Dosage: 2 X 200 MG
     Route: 058
     Dates: start: 20100301, end: 20100301
  10. CERTOLIZUMAB PEGOL [Suspect]
     Dosage: 200 MG
     Route: 058
     Dates: start: 20100316, end: 20100527
  11. METHOTREXATE SODIUM [Concomitant]
     Indication: RHEUMATOID ARTHRITIS
     Dosage: 15 MG QS
     Dates: start: 20080819

REACTIONS (1)
  - GENERALISED OEDEMA [None]
